FAERS Safety Report 7745891-1 (Version None)
Quarter: 2011Q3

REPORT INFORMATION
  Report Type: 
  Country: None (occurrence: None)
  Receive Date: 20110913
  Receipt Date: 20110907
  Transmission Date: 20111222
  Serious: Yes (Other)
  Sender: FDA-Public Use
  Company Number: US-PFIZER INC-2011210083

PATIENT
  Sex: Male
  Weight: 92.5 kg

DRUGS (20)
  1. CHANTIX [Concomitant]
     Dosage: 1 MG, 2X/DAY
  2. BISOPROLOL [Concomitant]
     Dosage: 5 MG, 1X/DAY
  3. PLAVIX [Concomitant]
     Dosage: 75 MG, 1X/DAY
  4. ZEBETA [Concomitant]
     Dosage: 5 MG, 1X/DAY
  5. FLOMAX [Concomitant]
     Dosage: 0.4 MG, 1X/DAY
  6. FORMOTEROL FUMARATE [Concomitant]
     Dosage: 20 UG, 2X/DAY
  7. NITROSTAT [Concomitant]
     Indication: CHEST PAIN
     Dosage: 0.4 MG, AS NEEDED
  8. SPIRIVA [Concomitant]
     Dosage: 18 UG, 1X/DAY
  9. DEPAKOTE [Concomitant]
     Dosage: 500 MG, 3X/DAY
  10. LYRICA [Suspect]
     Indication: SCIATIC NERVE INJURY
     Dosage: 75 MG, 2X/DAY
     Route: 048
     Dates: start: 20110825, end: 20110907
  11. PHENERGAN HCL [Concomitant]
     Dosage: 25 MG, 2X/DAY
  12. TRICOR [Concomitant]
     Dosage: 145 MG, 1X/DAY
  13. PERCOCET [Concomitant]
     Dosage: 10MG /325MG, 3X/DAY
  14. DALMANE [Concomitant]
     Dosage: 30 MG, 1X/DAY
  15. CRESTOR [Concomitant]
     Dosage: 20 MG, 1X/DAY
  16. SOMA [Concomitant]
     Dosage: 350 MG, 3X/DAY
  17. NEXIUM [Concomitant]
     Dosage: 40 MG, 1X/DAY
  18. ISOSORBIDE [Concomitant]
     Dosage: 10 MG, 3X/DAY
  19. XANAX [Concomitant]
     Dosage: 2 MG, 3X/DAY
  20. MORPHINE [Concomitant]
     Dosage: 30 MG, 3X/DAY

REACTIONS (12)
  - DYSPNOEA [None]
  - BLISTER [None]
  - MUSCULOSKELETAL STIFFNESS [None]
  - DIARRHOEA [None]
  - RASH [None]
  - COUGH [None]
  - DIPLOPIA [None]
  - SOMNOLENCE [None]
  - SLEEP TALKING [None]
  - DRUG HYPERSENSITIVITY [None]
  - PYREXIA [None]
  - INSOMNIA [None]
